FAERS Safety Report 4369776-6 (Version None)
Quarter: 2004Q2

REPORT INFORMATION
  Report Type: 
  Country: None (occurrence: None)
  Receive Date: 20040525
  Receipt Date: 20040512
  Transmission Date: 20050107
  Serious: Yes (Hospitalization)
  Sender: FDA-Public Use
  Company Number: 2004031973

PATIENT
  Age: 53 Year
  Sex: Female

DRUGS (5)
  1. SERTRALINE HCL [Suspect]
     Indication: DEPRESSION
     Dosage: 50 MG (50 MG, 1 IN 1 D), ORAL
     Route: 048
     Dates: start: 20040509, end: 20040510
  2. ATENOLOL [Concomitant]
  3. AMLODIPINE BESYLATE [Concomitant]
  4. INDAPAMIDE [Concomitant]
  5. ALENDRONATE SODIUM [Concomitant]

REACTIONS (6)
  - BLOOD CREATINE PHOSPHOKINASE INCREASED [None]
  - CONFUSIONAL STATE [None]
  - HYPOCALCAEMIA [None]
  - HYPONATRAEMIA [None]
  - NAUSEA [None]
  - VOMITING [None]
